FAERS Safety Report 5730757-9 (Version None)
Quarter: 2008Q2

REPORT INFORMATION
  Report Type: 
  Country: None (occurrence: None)
  Receive Date: 20080502
  Receipt Date: 20080425
  Transmission Date: 20081010
  Serious: Yes (Hospitalization)
  Sender: FDA-Public Use
  Company Number: 163-20785-08041810

PATIENT
  Age: 11 Year
  Sex: Female

DRUGS (1)
  1. THALOMID [Suspect]
     Indication: RHEUMATOID ARTHRITIS
     Dosage: 50 MG, 1 IN 1 D, ORAL
     Route: 048
     Dates: start: 20080401, end: 20080401

REACTIONS (3)
  - INFLAMMATION [None]
  - RASH [None]
  - RESPIRATORY DISORDER [None]
